FAERS Safety Report 5338967-X (Version None)
Quarter: 2007Q2

REPORT INFORMATION
  Report Type: 
  Country: None (occurrence: None)
  Receive Date: 20070530
  Receipt Date: 20070518
  Transmission Date: 20071010
  Serious: Yes (Other)
  Sender: FDA-Public Use
  Company Number: CA-PFIZER INC-2007041092

PATIENT
  Age: 60 Year
  Sex: Male

DRUGS (4)
  1. CHAMPIX [Suspect]
     Route: 048
  2. INSULIN [Concomitant]
  3. NAPROSYN [Concomitant]
  4. ATIVAN [Concomitant]

REACTIONS (4)
  - BLOOD GLUCOSE ABNORMAL [None]
  - DIZZINESS [None]
  - HEADACHE [None]
  - NAUSEA [None]
